FAERS Safety Report 4452546-8 (Version None)
Quarter: 2004Q3

REPORT INFORMATION
  Report Type: 
  Country: None (occurrence: None)
  Receive Date: 20040813
  Receipt Date: 20040427
  Transmission Date: 20050211
  Serious: No
  Sender: FDA-Public Use
  Company Number: S04-USA-03386-01

PATIENT
  Age: 86 Year
  Sex: Female

DRUGS (9)
  1. NAMENDA [Suspect]
     Indication: DEMENTIA ALZHEIMER'S TYPE
     Dosage: 5 MG QD PO
     Route: 048
     Dates: start: 20040423
  2. ASPIRIN [Concomitant]
  3. ATENOLOL [Concomitant]
  4. FEMARA [Concomitant]
  5. SURFAK (DOCUSATE CALCIUM) [Concomitant]
  6. ZANTAC [Concomitant]
  7. NITROSTAT [Concomitant]
  8. AREDIA [Concomitant]
  9. ARICEPT [Concomitant]

REACTIONS (1)
  - HEADACHE [None]
